FAERS Safety Report 8845786 (Version 6)
Quarter: 2013Q1

REPORT INFORMATION
  Report Type: Spontaneous
  Country: US (occurrence: US)
  Receive Date: 20121017
  Receipt Date: 20130115
  Transmission Date: 20140127
  Serious: Yes (Other)
  Sender: FDA-Public Use
  Company Number: US-PFIZER INC-2012257669

PATIENT
  Age: 45 Year
  Sex: Female

DRUGS (3)
  1. LYRICA [Suspect]
     Indication: PAIN
     Dosage: UNK MG, UNK
     Route: 048
     Dates: start: 2009, end: 2009
  2. LYRICA [Suspect]
     Dosage: 300 MG, 2X/DAY
     Route: 048
     Dates: start: 20100112, end: 2011
  3. NORTRIPTYLINE [Concomitant]
     Indication: PAIN
     Dosage: 10 MG, 2X/DAY
     Dates: start: 20091007, end: 2011

REACTIONS (5)
  - Bedridden [Not Recovered/Not Resolved]
  - Depression [Unknown]
  - Weight decreased [Recovered/Resolved]
  - Decreased appetite [Unknown]
  - Tremor [Unknown]
